FAERS Safety Report 21838604 (Version 2)
Quarter: 2025Q3

REPORT INFORMATION
  Report Type: Report from Study
  Country: CA (occurrence: CA)
  Receive Date: 20230109
  Receipt Date: 20250709
  Transmission Date: 20251020
  Serious: Yes (Hospitalization, Other)
  Sender: OTSUKA
  Company Number: CA-OTSUKA-2023_000451

PATIENT
  Sex: Female

DRUGS (1)
  1. ARIPIPRAZOLE [Suspect]
     Active Substance: ARIPIPRAZOLE
     Indication: Product used for unknown indication
     Dosage: 400 MG, QM
     Route: 030
     Dates: start: 20200220

REACTIONS (1)
  - Pneumonia [Unknown]
